FAERS Safety Report 5733784-0 (Version None)
Quarter: 2008Q2

REPORT INFORMATION
  Report Type: 
  Country: None (occurrence: None)
  Receive Date: 20080509
  Receipt Date: 20080429
  Transmission Date: 20081010
  Serious: Yes (Other)
  Sender: FDA-Public Use
  Company Number: CA-PFIZER INC-2008019232

PATIENT
  Sex: Female
  Weight: 61.7 kg

DRUGS (2)
  1. CHANTIX [Suspect]
     Indication: SMOKING CESSATION THERAPY
     Route: 048
     Dates: start: 20071217, end: 20080201
  2. ALCOHOL [Suspect]
     Route: 048

REACTIONS (7)
  - AGGRESSION [None]
  - AGITATION [None]
  - ANXIETY DISORDER [None]
  - DEPRESSION [None]
  - INSOMNIA [None]
  - PERSONALITY DISORDER [None]
  - SUICIDE ATTEMPT [None]
